FAERS Safety Report 6099737-0 (Version None)
Quarter: 2009Q1

REPORT INFORMATION
  Report Type: 
  Country: None (occurrence: None)
  Receive Date: 20090303
  Receipt Date: 20090219
  Transmission Date: 20090719
  Serious: Yes (Life-Threatening, Hospitalization)
  Sender: FDA-Public Use
  Company Number: US-ROCHE-603990

PATIENT
  Sex: Male
  Weight: 90 kg

DRUGS (1)
  1. MYCOPHENOLATE MOFETIL [Suspect]
     Indication: IMMUNOSUPPRESSION
     Route: 048
     Dates: start: 20080508

REACTIONS (9)
  - CONFUSIONAL STATE [None]
  - COUGH [None]
  - DYSPNOEA [None]
  - HEPATIC NEOPLASM MALIGNANT [None]
  - HYPERBILIRUBINAEMIA [None]
  - PLEURAL EFFUSION [None]
  - PYREXIA [None]
  - STATUS EPILEPTICUS [None]
  - SUBDURAL HAEMATOMA [None]
